FAERS Safety Report 9011332 (Version 1)
Quarter: 2013Q1

REPORT INFORMATION
  Report Type: Report from Study
  Country: US (occurrence: US)
  Receive Date: 20130108
  Receipt Date: 20130108
  Transmission Date: 20140127
  Serious: Yes (Other)
  Sender: FDA-Public Use
  Company Number: US-JNJFOC-20121213391

PATIENT
  Age: 60 Year
  Sex: Female

DRUGS (1)
  1. REMICADE [Suspect]
     Indication: RHEUMATOID ARTHRITIS
     Route: 042
     Dates: start: 200807

REACTIONS (9)
  - Intervertebral disc protrusion [Unknown]
  - Joint arthroplasty [Unknown]
  - Spinal disorder [Unknown]
  - Spondylitis [Unknown]
  - Bunion operation [Unknown]
  - Intervertebral disc protrusion [Unknown]
  - Gait disturbance [Unknown]
  - Muscle spasms [Unknown]
  - Arthralgia [Unknown]
